FAERS Safety Report 14311240 (Version 1)
Quarter: 2017Q4

REPORT INFORMATION
  Report Type: Spontaneous
  Country: US (occurrence: US)
  Receive Date: 20171221
  Receipt Date: 20171221
  Transmission Date: 20180321
  Serious: No
  Sender: FDA-Public Use
  Company Number: US-NOVEN PHARMACEUTICALS, INC.-US2017000289

PATIENT

DRUGS (2)
  1. MINIVELLE [Suspect]
     Active Substance: ESTRADIOL
     Indication: HOT FLUSH
     Dosage: 0.1 MG, UNKNOWN
     Route: 062
     Dates: end: 20170216
  2. MINIVELLE [Suspect]
     Active Substance: ESTRADIOL
     Indication: FEELING ABNORMAL
     Dosage: 0.0375 MG, UNKNOWN
     Route: 062
     Dates: start: 20170216

REACTIONS (4)
  - Off label use [Unknown]
  - Incorrect dose administered [Not Recovered/Not Resolved]
  - No adverse event [Unknown]
  - Inappropriate schedule of drug administration [Recovered/Resolved]

NARRATIVE: CASE EVENT DATE: 201702
